FAERS Safety Report 7743884-1 (Version None)
Quarter: 2011Q3

REPORT INFORMATION
  Report Type: 
  Country: None (occurrence: None)
  Receive Date: 20110912
  Receipt Date: 20110902
  Transmission Date: 20111222
  Serious: Yes (Hospitalization)
  Sender: FDA-Public Use
  Company Number: US-GLAXOSMITHKLINE-A0943352A

PATIENT
  Age: 56 Year
  Sex: Female

DRUGS (7)
  1. SPIRIVA [Concomitant]
  2. SINGULAIR [Concomitant]
  3. PREMARIN [Concomitant]
  4. DIOVAN [Concomitant]
  5. BENAZEPRIL HYDROCHLORIDE [Concomitant]
  6. ADVAIR DISKUS 100/50 [Suspect]
     Indication: CHRONIC OBSTRUCTIVE PULMONARY DISEASE
     Dosage: 1PUFF TWICE PER DAY
     Route: 055
     Dates: start: 19990101
  7. MULTI-VITAMIN [Concomitant]

REACTIONS (3)
  - LOWER RESPIRATORY TRACT INFECTION [None]
  - PNEUMONIA [None]
  - BREATH SOUNDS ABNORMAL [None]
